FAERS Safety Report 8141549-8 (Version None)
Quarter: 2012Q1

REPORT INFORMATION
  Report Type: 
  Country: None (occurrence: None)
  Receive Date: 20120216
  Receipt Date: 20120213
  Transmission Date: 20120608
  Serious: Yes (Hospitalization, Other)
  Sender: FDA-Public Use
  Company Number: US-B.I. PHARMACEUTICALS,INC./RIDGEFIELD-2012-BP-02806BP

PATIENT
  Age: 72 Year
  Sex: Female

DRUGS (5)
  1. PRADAXA [Suspect]
     Indication: ATRIAL FIBRILLATION
     Dosage: 300 MG
     Route: 048
     Dates: start: 20101201
  2. CRESTOR [Concomitant]
     Indication: BLOOD CHOLESTEROL INCREASED
  3. NEXIUM [Concomitant]
     Indication: GASTROOESOPHAGEAL REFLUX DISEASE
  4. AVAPRO [Concomitant]
     Indication: HYPERTENSION
  5. SOLOTOL [Concomitant]
     Indication: ATRIAL FIBRILLATION

REACTIONS (6)
  - RECTAL HAEMORRHAGE [None]
  - ARTHRALGIA [None]
  - DYSPEPSIA [None]
  - VENOUS THROMBOSIS LIMB [None]
  - COLON CANCER [None]
  - COMPLICATION OF DEVICE INSERTION [None]
